FAERS Safety Report 7505869-X (Version None)
Quarter: 2011Q2

REPORT INFORMATION
  Report Type: 
  Country: None (occurrence: None)
  Receive Date: 20110526
  Receipt Date: 20110516
  Transmission Date: 20111010
  Serious: Yes (Death, Other)
  Sender: FDA-Public Use
  Company Number: US-ELI_LILLY_AND_COMPANY-US201105004638

PATIENT
  Sex: Female

DRUGS (3)
  1. DIURETICS [Concomitant]
     Route: 065
  2. ANTIHYPERTENSIVES [Concomitant]
     Route: 065
  3. FORTEO [Suspect]
     Indication: OSTEOPOROSIS
     Dosage: 20 UG, QD
     Route: 065
     Dates: end: 20050101

REACTIONS (4)
  - COUGH [None]
  - FALL [None]
  - PNEUMONIA [None]
  - DEATH [None]
